FAERS Safety Report 13114941 (Version 1)
Quarter: 2017Q1

REPORT INFORMATION
  Report Type: Spontaneous
  Country: US (occurrence: US)
  Receive Date: 20170113
  Receipt Date: 20170113
  Transmission Date: 20170428
  Serious: No
  Sender: FDA-Public Use
  Company Number: US-PFIZER INC-2017014057

PATIENT
  Age: 49 Year

DRUGS (1)
  1. GABAPENTIN. [Suspect]
     Active Substance: GABAPENTIN
     Dosage: 1800 MG, DAILY, (1/HS, 1 CAP AM, 1 CAP NOON, 3 CAPS AT HS)

REACTIONS (1)
  - Drug ineffective [Unknown]
